FAERS Safety Report 4552877-7 (Version None)
Quarter: 2005Q1

REPORT INFORMATION
  Report Type: 
  Country: None (occurrence: None)
  Receive Date: 20050114
  Receipt Date: 20041101
  Transmission Date: 20050727
  Serious: Yes (Life-Threatening, Hospitalization, Disabling)
  Sender: FDA-Public Use
  Company Number: US-MERCK-0411USA00283

PATIENT
  Age: 77 Year
  Sex: Male

DRUGS (6)
  1. VIOXX [Suspect]
     Indication: ARTHRITIS
     Route: 048
     Dates: start: 20020807, end: 20040930
  2. LASIX [Concomitant]
     Route: 048
  3. POTASSIUM (UNSPECIFIED) [Concomitant]
     Route: 065
  4. METOPROLOL [Concomitant]
     Route: 065
  5. NAPROSYN [Concomitant]
     Route: 065
  6. ASPIRIN [Concomitant]
     Route: 065

REACTIONS (10)
  - ACQUIRED DIAPHRAGMATIC EVENTRATION [None]
  - AORTIC VALVE SCLEROSIS [None]
  - ATRIOVENTRICULAR BLOCK SECOND DEGREE [None]
  - CARDIAC FAILURE CONGESTIVE [None]
  - CORONARY ARTERY DISEASE [None]
  - CORONARY ARTERY STENOSIS [None]
  - CORONARY OSTIAL STENOSIS [None]
  - MITRAL VALVE INCOMPETENCE [None]
  - TRICUSPID VALVE INCOMPETENCE [None]
  - VENTRICULAR HYPOKINESIA [None]
